FAERS Safety Report 10235444 (Version 4)
Quarter: 2014Q4

REPORT INFORMATION
  Report Type: Report from Study
  Country: BR (occurrence: BR)
  Receive Date: 20140613
  Receipt Date: 20141112
  Transmission Date: 20150528
  Serious: Yes (Other)
  Sender: FDA-Public Use
  Company Number: BR-ROCHE-1282992

PATIENT
  Sex: Female
  Weight: 92 kg

DRUGS (18)
  1. RIVOTRIL [Concomitant]
     Active Substance: CLONAZEPAM
  2. ONBREZ [Concomitant]
     Active Substance: INDACATEROL
  3. NEVANAC [Concomitant]
     Active Substance: NEPAFENAC
  4. METFORMIN [Concomitant]
     Active Substance: METFORMIN HYDROCHLORIDE
  5. BRIMONIDINE TARTRATE. [Concomitant]
     Active Substance: BRIMONIDINE TARTRATE
  6. LUCENTIS [Suspect]
     Active Substance: RANIBIZUMAB
     Indication: CYSTOID MACULAR OEDEMA
     Route: 050
     Dates: start: 20131008
  7. OMEPRAZOLE. [Concomitant]
     Active Substance: OMEPRAZOLE
  8. GLIFAGE [Concomitant]
     Active Substance: METFORMIN HYDROCHLORIDE
  9. BENICAR HCT [Concomitant]
     Active Substance: HYDROCHLOROTHIAZIDE\OLMESARTAN MEDOXOMIL
  10. ATROPINE [Concomitant]
     Active Substance: ATROPINE
  11. LUCENTIS [Suspect]
     Active Substance: RANIBIZUMAB
     Indication: AGE-RELATED MACULAR DEGENERATION
     Route: 050
     Dates: start: 20110314
  12. CONCOR [Concomitant]
     Active Substance: BISOPROLOL FUMARATE
  13. INSULIN [Concomitant]
     Active Substance: INSULIN NOS
  14. ALPHAGAN P [Concomitant]
     Active Substance: BRIMONIDINE TARTRATE
  15. PURAN [Concomitant]
     Active Substance: LEVOTHYROXINE SODIUM
     Route: 065
  16. LUCENTIS [Suspect]
     Active Substance: RANIBIZUMAB
     Indication: MACULAR OEDEMA
     Route: 050
     Dates: start: 2013, end: 20140114
  17. GALVUS [Suspect]
     Active Substance: VILDAGLIPTIN
     Indication: DIABETES MELLITUS
     Route: 048
  18. PRED FORTE [Concomitant]
     Active Substance: PREDNISOLONE ACETATE

REACTIONS (13)
  - Diabetic retinopathy [Unknown]
  - Visual acuity reduced [Recovering/Resolving]
  - Drug ineffective [Unknown]
  - Hypertension [Unknown]
  - Eye swelling [Not Recovered/Not Resolved]
  - Blindness [Recovering/Resolving]
  - Eye pain [Recovering/Resolving]
  - Vision blurred [Unknown]
  - Body height decreased [Unknown]
  - Visual impairment [Unknown]
  - Off label use [Unknown]
  - Macular cyst [Recovering/Resolving]
  - Central obesity [Unknown]
